FAERS Safety Report 6607319-4 (Version None)
Quarter: 2010Q1

REPORT INFORMATION
  Report Type: 
  Country: None (occurrence: None)
  Receive Date: 20100228
  Receipt Date: 20100217
  Transmission Date: 20100710
  Serious: Yes (Death, Other)
  Sender: FDA-Public Use
  Company Number: DE-BRISTOL-MYERS SQUIBB COMPANY-14982193

PATIENT
  Age: 56 Year
  Sex: Male

DRUGS (5)
  1. TAXOL [Suspect]
     Indication: NON-SMALL CELL LUNG CANCER
     Dosage: DAYS 1, 8 AND 15 EVERY 4 WEEKS, 1ST CYC:19NOV04,2ND CYC:17DEC04,3RD CYC:13JAN05,LAST INF:13JAN05
     Dates: start: 20041119, end: 20050113
  2. CARBOPLATIN [Suspect]
     Indication: NON-SMALL CELL LUNG CANCER
     Dosage: 1 DF-AUC5,DAY 1 1-HOUR INFUSION,1ST CYC:19NOV04, 2ND CYC:17DEC04,3RD CYC:13JAN05,LAST INF:13JAN05
     Dates: start: 20041119, end: 20050113
  3. DEXAMETHASONE [Concomitant]
     Route: 048
     Dates: start: 20041119
  4. CLEMASTINE FUMARATE [Concomitant]
     Route: 042
     Dates: start: 20041119
  5. RANITIDINE [Concomitant]
     Route: 042
     Dates: start: 20041119

REACTIONS (2)
  - DYSPNOEA [None]
  - TUMOUR HAEMORRHAGE [None]
